FAERS Safety Report 21033252 (Version 1)
Quarter: 2022Q2

REPORT INFORMATION
  Report Type: Spontaneous
  Country: US (occurrence: None)
  Receive Date: 20220630
  Receipt Date: 20220630
  Transmission Date: 20220720
  Serious: No
  Sender: FDA-Public Use
  Company Number: None

PATIENT
  Age: 41 Year
  Sex: Female

DRUGS (1)
  1. PAXLOVID [Suspect]
     Active Substance: NIRMATRELVIR\RITONAVIR
     Indication: COVID-19
     Dosage: FREQUENCY : TWICE A DAY;?
     Route: 048
     Dates: start: 20220607, end: 20220611

REACTIONS (5)
  - Dysgeusia [None]
  - Chills [None]
  - Pyrexia [None]
  - Gastrointestinal pain [None]
  - Abdominal discomfort [None]

NARRATIVE: CASE EVENT DATE: 20220607
